FAERS Safety Report 4777810-4 (Version None)
Quarter: 2005Q3

REPORT INFORMATION
  Report Type: 
  Country: None (occurrence: None)
  Receive Date: 20050925
  Receipt Date: 20050914
  Transmission Date: 20060218
  Serious: Yes (Death)
  Sender: FDA-Public Use
  Company Number: US-JNJFOC-20030601059

PATIENT
  Sex: Female

DRUGS (19)
  1. REMICADE [Suspect]
     Indication: RHEUMATOID ARTHRITIS
     Route: 042
     Dates: start: 20010628, end: 20020801
  2. ARAVA [Concomitant]
  3. PREDNISONE [Concomitant]
  4. TYLENOL ARTHRITIS [Concomitant]
  5. ACCUPRIL [Concomitant]
  6. GLIPZIDE [Concomitant]
  7. MIACALCIN [Concomitant]
  8. PREMARIN [Concomitant]
  9. CALCIUM GLUCONATE [Concomitant]
  10. PRILOSEC [Concomitant]
  11. ZOLOFT [Concomitant]
  12. MULTI-VITAMINS [Concomitant]
  13. MULTI-VITAMINS [Concomitant]
  14. MULTI-VITAMINS [Concomitant]
  15. MULTI-VITAMINS [Concomitant]
  16. MULTI-VITAMINS [Concomitant]
  17. MULTI-VITAMINS [Concomitant]
  18. MULTI-VITAMINS [Concomitant]
  19. MULTI-VITAMINS [Concomitant]

REACTIONS (2)
  - CORONARY ARTERY ATHEROSCLEROSIS [None]
  - DIABETES MELLITUS [None]
